FAERS Safety Report 15277835 (Version 1)
Quarter: 2018Q3

REPORT INFORMATION
  Report Type: Report from Study
  Country: FR (occurrence: FR)
  Receive Date: 20180814
  Receipt Date: 20180814
  Transmission Date: 20181010
  Serious: Yes (Hospitalization)
  Sender: FDA-Public Use
  Company Number: FR-TEVA-2018-FR-939248

PATIENT
  Age: 7 Year
  Sex: Female
  Weight: 27.9 kg

DRUGS (20)
  1. VINCRISTINE [Suspect]
     Active Substance: VINCRISTINE
     Dosage: 1.5 UNK, UNK
     Route: 042
     Dates: start: 20170530, end: 20170530
  2. AMITRIPTYLINE [Concomitant]
     Active Substance: AMITRIPTYLINE
     Indication: PROPHYLAXIS
  3. PARACETAMOL [Concomitant]
     Active Substance: ACETAMINOPHEN
     Indication: ANALGESIC THERAPY
  4. PEGASPARGASE [Suspect]
     Active Substance: PEGASPARGASE
     Indication: ACUTE LYMPHOCYTIC LEUKAEMIA
     Dosage: 1200 IU, UNK
     Dates: start: 20170606, end: 20170606
  5. PIPERACILLINE / TAZOBACTAM MYLAN [Concomitant]
     Active Substance: PIPERACILLIN SODIUM\TAZOBACTAM SODIUM
     Indication: PROPHYLAXIS
  6. METHOTREXATE. [Suspect]
     Active Substance: METHOTREXATE
     Indication: ACUTE LYMPHOCYTIC LEUKAEMIA
     Dosage: UNK
     Route: 037
     Dates: start: 20170531, end: 20170531
  7. 6?MERCAPTOPURINE MONOHYDRATE [Suspect]
     Active Substance: MERCAPTOPURINE
     Indication: ACUTE LYMPHOCYTIC LEUKAEMIA
     Dosage: 700 MG, TOTAL DOSE
     Route: 065
     Dates: start: 20170530, end: 20170620
  8. PURINETHOL [Suspect]
     Active Substance: MERCAPTOPURINE
     Indication: ACUTE LYMPHOCYTIC LEUKAEMIA
     Dosage: UNK MG, UNK
     Route: 065
     Dates: start: 20170609, end: 20170615
  9. ESOMEPRAZOLE [Concomitant]
     Active Substance: ESOMEPRAZOLE
     Indication: PROPHYLAXIS AGAINST GASTROINTESTINAL ULCER
  10. ERGOCALCIFEROL. [Concomitant]
     Active Substance: ERGOCALCIFEROL
     Indication: PROPHYLAXIS
  11. FLIXOTIDE [Concomitant]
     Active Substance: FLUTICASONE PROPIONATE
     Indication: ASTHMA PROPHYLAXIS
  12. CALCIDOSE                          /07357001/ [Concomitant]
     Active Substance: CALCIUM CARBONATE
     Indication: PROPHYLAXIS
  13. LACTULOSE. [Concomitant]
     Active Substance: LACTULOSE
     Indication: CONSTIPATION
  14. PIPERACILLINE / TAZOBACTAM MYLAN [Concomitant]
     Active Substance: PIPERACILLIN SODIUM\TAZOBACTAM SODIUM
     Indication: FEBRILE BONE MARROW APLASIA
  15. VINCRISTINE [Suspect]
     Active Substance: VINCRISTINE
     Indication: ACUTE LYMPHOCYTIC LEUKAEMIA
     Dosage: UNK
     Route: 042
     Dates: start: 20170606, end: 20170606
  16. PURINETHOL [Suspect]
     Active Substance: MERCAPTOPURINE
     Dosage: UNK
     Route: 065
     Dates: end: 20170620
  17. DEXAMETHASONE. [Suspect]
     Active Substance: DEXAMETHASONE
     Indication: ACUTE LYMPHOCYTIC LEUKAEMIA
     Dosage: UNK
     Route: 048
     Dates: start: 20170530, end: 20170603
  18. METHOTREXATE. [Suspect]
     Active Substance: METHOTREXATE
     Dosage: 25 UNK, UNK
     Route: 048
     Dates: start: 20170620, end: 20170620
  19. VITAMIN K1 [Concomitant]
     Active Substance: PHYTONADIONE
     Indication: PROTHROMBIN TIME SHORTENED
  20. PENTACARINAT [Concomitant]
     Active Substance: PENTAMIDINE ISETHIONATE
     Indication: PROPHYLAXIS

REACTIONS (2)
  - Jugular vein thrombosis [Recovered/Resolved]
  - Hypertriglyceridaemia [Unknown]

NARRATIVE: CASE EVENT DATE: 20170612
